FAERS Safety Report 5132812-3 (Version None)
Quarter: 2006Q4

REPORT INFORMATION
  Report Type: 
  Country: None (occurrence: None)
  Receive Date: 20061017
  Receipt Date: 20061006
  Transmission Date: 20070319
  Serious: Yes (Hospitalization)
  Sender: FDA-Public Use
  Company Number: CHWYE150306OCT06

PATIENT
  Age: 45 Year
  Sex: Male

DRUGS (4)
  1. EFFEXOR [Suspect]
     Indication: DEPRESSION
     Dosage: 75 MG 1X PER 1 DAY ORAL; SEE IMAGE
     Route: 048
     Dates: start: 20060801, end: 20060801
  2. EFFEXOR [Suspect]
     Indication: DEPRESSION
     Dosage: 75 MG 1X PER 1 DAY ORAL; SEE IMAGE
     Route: 048
     Dates: start: 20060101, end: 20060801
  3. EFFEXOR [Suspect]
     Indication: DEPRESSION
     Dosage: 75 MG 1X PER 1 DAY ORAL; SEE IMAGE
     Route: 048
     Dates: start: 20060801
  4. ETHANOL (ETHANOL, , 0) [Suspect]
     Dates: start: 20060827, end: 20060827

REACTIONS (8)
  - ELECTROCARDIOGRAM QT PROLONGED [None]
  - GRAND MAL CONVULSION [None]
  - HEPATOTOXICITY [None]
  - HYPOXIA [None]
  - INTENTIONAL OVERDOSE [None]
  - RHABDOMYOLYSIS [None]
  - SUICIDAL IDEATION [None]
  - SUICIDE ATTEMPT [None]
